FAERS Safety Report 6456178-1 (Version None)
Quarter: 2009Q4

REPORT INFORMATION
  Report Type: 
  Country: None (occurrence: None)
  Receive Date: 20091125
  Receipt Date: 20091117
  Transmission Date: 20100525
  Serious: Yes (Hospitalization)
  Sender: FDA-Public Use
  Company Number: US-B.I. PHARMACEUTICALS,INC./RIDGEFIELD-2009-BP-12728BP

PATIENT
  Sex: Male

DRUGS (4)
  1. MIRAPEX [Suspect]
     Indication: RESTLESS LEGS SYNDROME
     Dosage: 1.5 MG
     Dates: end: 20090923
  2. HYZAAR [Concomitant]
  3. VYTORIN [Concomitant]
  4. NIACIN [Concomitant]

REACTIONS (16)
  - AORTIC VALVE DISEASE [None]
  - ASTHENIA [None]
  - BACK PAIN [None]
  - CATARACT [None]
  - DISTURBANCE IN ATTENTION [None]
  - DIZZINESS [None]
  - EYELID DISORDER [None]
  - FATIGUE [None]
  - HIATUS HERNIA [None]
  - INSOMNIA [None]
  - LETHARGY [None]
  - LEUKOPENIA [None]
  - PERSONALITY CHANGE [None]
  - SOMNOLENCE [None]
  - TREMOR [None]
  - VISION BLURRED [None]
